FAERS Safety Report 6839029-2 (Version None)
Quarter: 2010Q3

REPORT INFORMATION
  Report Type: 
  Country: None (occurrence: None)
  Receive Date: 20100714
  Receipt Date: 20100603
  Transmission Date: 20110219
  Serious: Yes (Other)
  Sender: FDA-Public Use
  Company Number: IT-BRISTOL-MYERS SQUIBB COMPANY-15183676

PATIENT
  Sex: Female

DRUGS (1)
  1. GLUCOPHAGE [Suspect]
     Dosage: GLUCOPHAGE 1000MG*1600
     Route: 048

REACTIONS (4)
  - CARDIAC FIBRILLATION [None]
  - HYPOTENSION [None]
  - MALAISE [None]
  - TACHYCARDIA [None]
